FAERS Safety Report 16983590 (Version 1)
Quarter: 2019Q4

REPORT INFORMATION
  Report Type: Spontaneous
  Country: DK (occurrence: DK)
  Receive Date: 20191101
  Receipt Date: 20191101
  Transmission Date: 20200122
  Serious: Yes (Other)
  Sender: FDA-Public Use
  Company Number: DK-JNJFOC-20191041084

PATIENT
  Age: 29 Year
  Sex: Female

DRUGS (2)
  1. SIMPONI [Suspect]
     Active Substance: GOLIMUMAB
     Indication: COLITIS ULCERATIVE
     Dosage: STYRKE: 100 MG.
     Route: 058
     Dates: start: 201907
  2. EUTHYROX [Concomitant]
     Active Substance: LEVOTHYROXINE SODIUM
     Indication: MYXOEDEMA
     Dosage: STYRKE: 100 MIKROGRAM.
     Route: 048
     Dates: start: 2017

REACTIONS (2)
  - Maternal exposure during pregnancy [Recovered/Resolved]
  - Abortion missed [Not Recovered/Not Resolved]

NARRATIVE: CASE EVENT DATE: 201909
